FAERS Safety Report 6411027-2 (Version None)
Quarter: 2009Q4

REPORT INFORMATION
  Report Type: 
  Country: None (occurrence: None)
  Receive Date: 20091020
  Receipt Date: 20091020
  Transmission Date: 20100525
  Serious: No
  Sender: FDA-Public Use
  Company Number: None

PATIENT
  Sex: Male
  Weight: 77.5651 kg

DRUGS (2)
  1. LEVAQUIN [Suspect]
     Indication: CYSTITIS
     Dosage: 750 MG ONCE PER DAY PO
     Route: 048
     Dates: start: 20090917, end: 20090927
  2. LEVAQUIN [Suspect]
     Indication: LUNG DISORDER
     Dosage: 750 MG ONCE PER DAY PO
     Route: 048
     Dates: start: 20090917, end: 20090927

REACTIONS (6)
  - ASTHENIA [None]
  - FALL [None]
  - GAIT DISTURBANCE [None]
  - MUSCULAR WEAKNESS [None]
  - TENDON PAIN [None]
  - WALKING AID USER [None]
